FAERS Safety Report 25324335 (Version 1)
Quarter: 2025Q2

REPORT INFORMATION
  Report Type: Spontaneous
  Country: US (occurrence: US)
  Receive Date: 20250516
  Receipt Date: 20250516
  Transmission Date: 20250717
  Serious: No
  Sender: NOVEN
  Company Number: US-NOVEN PHARMACEUTICALS, INC.-2024-NOV-US000802

PATIENT
  Age: 14 Year
  Sex: Female

DRUGS (5)
  1. METHYLPHENIDATE [Suspect]
     Active Substance: METHYLPHENIDATE
     Indication: Attention deficit hyperactivity disorder
     Route: 062
  2. METHYLPHENIDATE [Suspect]
     Active Substance: METHYLPHENIDATE
     Route: 048
  3. GUANFACINE [Concomitant]
     Active Substance: GUANFACINE
     Indication: Affective disorder
     Route: 065
  4. LAMOTRIGINE [Concomitant]
     Active Substance: LAMOTRIGINE
     Indication: Affective disorder
     Route: 065
  5. ZIPRASIDONE [Concomitant]
     Active Substance: ZIPRASIDONE
     Indication: Affective disorder
     Route: 065

REACTIONS (1)
  - Product ineffective [Unknown]
